FAERS Safety Report 6685944-2 (Version None)
Quarter: 2010Q2

REPORT INFORMATION
  Report Type: 
  Country: None (occurrence: None)
  Receive Date: 20100419
  Receipt Date: 20100405
  Transmission Date: 20101027
  Serious: Yes (Other)
  Sender: FDA-Public Use
  Company Number: PHHY2010US21669

PATIENT
  Sex: Male

DRUGS (6)
  1. GLEEVEC [Suspect]
     Indication: CHRONIC MYELOID LEUKAEMIA
     Dosage: 400 MG DAILY
     Route: 048
     Dates: start: 20080814
  2. MARINOL [Concomitant]
     Dosage: 5 MG
  3. LOTREL [Concomitant]
     Dosage: 10-40 MG
  4. LOMOTIL [Concomitant]
  5. ROXICODONE [Concomitant]
  6. MAXZIDE [Concomitant]

REACTIONS (8)
  - ABDOMINAL PAIN UPPER [None]
  - ARTERIAL BYPASS OPERATION [None]
  - BONE PAIN [None]
  - DIARRHOEA [None]
  - MUSCULOSKELETAL PAIN [None]
  - RASH [None]
  - ULCER [None]
  - VOMITING [None]
